FAERS Safety Report 14255613 (Version 1)
Quarter: 2017Q4

REPORT INFORMATION
  Report Type: Spontaneous
  Country: DE (occurrence: DE)
  Receive Date: 20171206
  Receipt Date: 20171206
  Transmission Date: 20180321
  Serious: Yes (Other)
  Sender: FDA-Public Use
  Company Number: DE-ALEXION PHARMACEUTICALS INC.-A201713576

PATIENT
  Sex: Male

DRUGS (3)
  1. SOLIRIS [Suspect]
     Active Substance: ECULIZUMAB
     Indication: OFF LABEL USE
  2. SOLIRIS [Suspect]
     Active Substance: ECULIZUMAB
     Indication: THROMBOTIC MICROANGIOPATHY
     Dosage: 16 INFUSIONS, UNK
     Route: 065
     Dates: start: 20160501, end: 20161101
  3. METHYLPREDNISOLONE. [Concomitant]
     Active Substance: METHYLPREDNISOLONE
     Indication: GRAFT VERSUS HOST DISEASE
     Route: 065

REACTIONS (6)
  - Off label use [Unknown]
  - Reticulocyte count increased [Recovered/Resolved]
  - Human herpesvirus 6 infection [Recovered/Resolved]
  - Cytomegalovirus infection [Recovered/Resolved]
  - Graft versus host disease [Recovered/Resolved]
  - Myopathy [Unknown]
